FAERS Safety Report 15790620 (Version 3)
Quarter: 2019Q1

REPORT INFORMATION
  Report Type: Report from Study
  Country: BR (occurrence: BR)
  Receive Date: 20190104
  Receipt Date: 20190201
  Transmission Date: 20190417
  Serious: Yes (Hospitalization, Other)
  Sender: FDA-Public Use
  Company Number: BR-BAYER-2018-237619

PATIENT
  Age: 48 Year
  Sex: Male

DRUGS (6)
  1. STIVARGA [Suspect]
     Active Substance: REGORAFENIB
     Indication: GASTROINTESTINAL CARCINOMA
     Dosage: 120 MG, QD
     Route: 048
     Dates: start: 20181218
  2. LACTULONA [Concomitant]
     Indication: CONSTIPATION
     Dosage: UNK
  3. OMEPRAZOLE. [Concomitant]
     Active Substance: OMEPRAZOLE
     Indication: GASTRITIS
     Dosage: UNK
  4. STIVARGA [Suspect]
     Active Substance: REGORAFENIB
     Indication: GASTROINTESTINAL CARCINOMA
     Dosage: 40 MG, QD - 21 DAYS ON AND 7 DAYS OFF
  5. DIPIRON [Concomitant]
     Indication: PAIN
  6. MORPHINE [Concomitant]
     Active Substance: MORPHINE
     Indication: PAIN
     Dosage: UNK, EVERY 4 HOURS

REACTIONS (12)
  - Nausea [None]
  - Off label use [None]
  - Dyspnoea [None]
  - Urinary tract infection [None]
  - Metastases to lung [None]
  - Pleural effusion [None]
  - Depressed mood [Not Recovered/Not Resolved]
  - Fatigue [None]
  - Blood pressure abnormal [Recovered/Resolved]
  - Gastrointestinal tube insertion [None]
  - Hospitalisation [Not Recovered/Not Resolved]
  - Asthenia [None]
